FAERS Safety Report 19361990 (Version 3)
Quarter: 2024Q3

REPORT INFORMATION
  Report Type: Spontaneous
  Country: IT (occurrence: IT)
  Receive Date: 20210601
  Receipt Date: 20240821
  Transmission Date: 20241016
  Serious: Yes (Other)
  Sender: PFIZER
  Company Number: IT-ELI_LILLY_AND_COMPANY-IT202105001041

PATIENT
  Age: 43 Year
  Sex: Female

DRUGS (7)
  1. IRINOTECAN HYDROCHLORIDE [Suspect]
     Active Substance: IRINOTECAN HYDROCHLORIDE
     Indication: Gastric neoplasm
     Dosage: UNK
     Route: 065
     Dates: start: 202009
  2. PACLITAXEL [Suspect]
     Active Substance: PACLITAXEL
     Indication: Gastric neoplasm
     Dosage: UNK
     Route: 065
     Dates: start: 201912, end: 202005
  3. LEUCOVORIN [Suspect]
     Active Substance: LEUCOVORIN\LEUCOVORIN CALCIUM
     Indication: Gastric neoplasm
     Dosage: UNK
     Route: 065
     Dates: start: 202009
  4. GRANULOCYTE COLONY-STIMULATING FACTOR NOS [Suspect]
     Active Substance: GRANULOCYTE COLONY-STIMULATING FACTOR NOS
     Indication: Prophylaxis
     Dosage: UNK
     Route: 065
     Dates: start: 202009
  5. GRANULOCYTE COLONY-STIMULATING FACTOR NOS [Suspect]
     Active Substance: GRANULOCYTE COLONY-STIMULATING FACTOR NOS
     Indication: Gastric neoplasm
  6. RAMUCIRUMAB [Suspect]
     Active Substance: RAMUCIRUMAB
     Indication: Gastric neoplasm
     Dosage: UNK
     Route: 065
     Dates: start: 201912
  7. FLUOROURACIL [Suspect]
     Active Substance: FLUOROURACIL
     Indication: Gastric neoplasm
     Dosage: UNK
     Route: 065
     Dates: start: 202009

REACTIONS (10)
  - Neurotoxicity [Unknown]
  - Neuropathy peripheral [Unknown]
  - Neutropenia [Unknown]
  - Neoplasm progression [Unknown]
  - Weight decreased [Unknown]
  - Diarrhoea [Unknown]
  - Asthenia [Unknown]
  - Alopecia [Unknown]
  - Eastern Cooperative Oncology Group performance status worsened [Unknown]
  - Off label use [Unknown]

NARRATIVE: CASE EVENT DATE: 20191201
